FAERS Safety Report 9426546 (Version 1)
Quarter: 2013Q3

REPORT INFORMATION
  Report Type: Spontaneous
  Country: US (occurrence: None)
  Receive Date: 20130729
  Receipt Date: 20130729
  Transmission Date: 20140515
  Serious: Yes (Other)
  Sender: FDA-Public Use
  Company Number: None

PATIENT
  Age: 36 Year
  Sex: Female
  Weight: 103.87 kg

DRUGS (1)
  1. VENLAFAXINE HCL [Suspect]
     Indication: DEPRESSION
     Dosage: 1 TABLET
     Route: 048
     Dates: start: 20130728, end: 20130728

REACTIONS (7)
  - Vomiting projectile [None]
  - Abdominal pain upper [None]
  - Hot flush [None]
  - Chest pain [None]
  - Chest discomfort [None]
  - Dyspnoea [None]
  - Blood pressure increased [None]
